FAERS Safety Report 16929918 (Version 1)
Quarter: 2019Q4

REPORT INFORMATION
  Report Type: Spontaneous
  Country: SE (occurrence: SE)
  Receive Date: 20191017
  Receipt Date: 20191017
  Transmission Date: 20200122
  Serious: Yes (Life-Threatening, Hospitalization)
  Sender: FDA-Public Use
  Company Number: SE-PFIZER INC-2019446967

PATIENT
  Age: 28 Year
  Sex: Female

DRUGS (1)
  1. SALAZOPYRIN [Suspect]
     Active Substance: SULFASALAZINE
     Indication: COLITIS ULCERATIVE
     Dosage: 2000 MG, DAILY
     Route: 048
     Dates: start: 1995, end: 20190910

REACTIONS (4)
  - Pyrexia [Recovered/Resolved with Sequelae]
  - Neutropenia [Not Recovered/Not Resolved]
  - Agranulocytosis [Recovered/Resolved with Sequelae]
  - Infection [Recovered/Resolved with Sequelae]

NARRATIVE: CASE EVENT DATE: 20190801
